FAERS Safety Report 7688925-5 (Version None)
Quarter: 2011Q3

REPORT INFORMATION
  Report Type: 
  Country: None (occurrence: None)
  Receive Date: 20110817
  Receipt Date: 20110813
  Transmission Date: 20111222
  Serious: Yes (Hospitalization, Other)
  Sender: FDA-Public Use
  Company Number: US-PFIZER INC-2011187251

PATIENT
  Age: 82 Year
  Sex: Male

DRUGS (1)
  1. DISOPYRAMIDE PHOSPHATE [Suspect]
     Dosage: 150 MG, 3X/DAY

REACTIONS (2)
  - OBSTRUCTIVE UROPATHY [None]
  - HYPOGLYCAEMIC COMA [None]
